FAERS Safety Report 18367788 (Version 1)
Quarter: 2020Q4

REPORT INFORMATION
  Report Type: Spontaneous
  Country: US (occurrence: US)
  Receive Date: 20201009
  Receipt Date: 20201009
  Transmission Date: 20210114
  Serious: Yes (Other)
  Sender: FDA-Public Use
  Company Number: US-TEVA-2020-US-1836299

PATIENT
  Sex: Female

DRUGS (1)
  1. COPAXONE [Suspect]
     Active Substance: GLATIRAMER ACETATE
     Route: 065

REACTIONS (6)
  - Chest pain [Unknown]
  - Speech disorder [Unknown]
  - Pain [Unknown]
  - Feeling abnormal [Unknown]
  - Muscle spasms [Unknown]
  - Dyspnoea [Unknown]
